FAERS Safety Report 8217988-3 (Version None)
Quarter: 2012Q1

REPORT INFORMATION
  Report Type: 
  Country: None (occurrence: None)
  Receive Date: 20120319
  Receipt Date: 20120316
  Transmission Date: 20120608
  Serious: Yes (Other)
  Sender: FDA-Public Use
  Company Number: US-PFIZER INC-2012069823

PATIENT
  Sex: Male
  Weight: 85.714 kg

DRUGS (5)
  1. OXYCODONE [Concomitant]
     Indication: BACK PAIN
     Dosage: 5/325 MG AS NEEDED
  2. CORTISONE [Concomitant]
     Indication: PAIN IN EXTREMITY
     Dosage: UNK
  3. CHANTIX [Suspect]
     Indication: SMOKING CESSATION THERAPY
     Dosage: 0.5 MG, DAILY
     Route: 048
     Dates: start: 20120201, end: 20120101
  4. CHANTIX [Suspect]
     Dosage: UNK
     Route: 048
     Dates: start: 20120101
  5. GABAPENTIN [Concomitant]
     Indication: BACK PAIN
     Dosage: 300 MG, 3X/DAY

REACTIONS (1)
  - BACK DISORDER [None]
